FAERS Safety Report 4956562-9 (Version None)
Quarter: 2006Q1

REPORT INFORMATION
  Report Type: 
  Country: None (occurrence: None)
  Receive Date: 20060329
  Receipt Date: 20050328
  Transmission Date: 20060701
  Serious: Yes (Hospitalization, Other)
  Sender: FDA-Public Use
  Company Number: US-MERCK-0503USA04961

PATIENT
  Age: 60 Year
  Sex: Female
  Weight: 127 kg

DRUGS (1)
  1. VIOXX [Suspect]
     Indication: BACK PAIN
     Route: 048

REACTIONS (4)
  - CEREBROVASCULAR ACCIDENT [None]
  - HEADACHE [None]
  - THROMBOSIS [None]
  - WRIST FRACTURE [None]
